FAERS Safety Report 26082673 (Version 1)
Quarter: 2025Q4

REPORT INFORMATION
  Report Type: Spontaneous
  Country: US (occurrence: None)
  Receive Date: 20251122
  Receipt Date: 20251122
  Transmission Date: 20260118
  Serious: Yes (Hospitalization)
  Sender: FDA-CTU
  Company Number: None

PATIENT
  Sex: Male

DRUGS (11)
  1. LENALIDOMIDE [Suspect]
     Active Substance: LENALIDOMIDE
     Indication: Plasma cell myeloma in remission
     Route: 048
     Dates: start: 20251121
  2. ACETAMINOPHE TAB 650MG ER [Concomitant]
  3. CALCIUM GARB TAB 1250MG [Concomitant]
  4. ELIQUIS [Concomitant]
     Active Substance: APIXABAN
  5. FOLVITE-D TAB [Concomitant]
  6. MAGNESIUM TAB 250MG [Concomitant]
  7. OXYCODONE TAB 10MG [Concomitant]
  8. PROCHLORPER TAB 10MG [Concomitant]
  9. SODIUM FLUOR CRE 5000 PLS [Concomitant]
  10. VALACYCLOVIR TAB 500MG [Concomitant]
  11. VITAMIN D3 CAP 400UNIT [Concomitant]

REACTIONS (3)
  - Pneumonia bacterial [None]
  - Anaemia [None]
  - Back pain [None]
